FAERS Safety Report 7213193-8 (Version None)
Quarter: 2010Q4

REPORT INFORMATION
  Report Type: 
  Country: None (occurrence: None)
  Receive Date: 20101227
  Receipt Date: 20101215
  Transmission Date: 20110411
  Serious: No
  Sender: FDA-Public Use
  Company Number: 023870

PATIENT
  Sex: Female

DRUGS (1)
  1. LACOSAMIDE [Suspect]

REACTIONS (2)
  - BRADYCARDIA [None]
  - ELECTROCARDIOGRAM PR PROLONGATION [None]
